FAERS Safety Report 24533187 (Version 1)
Quarter: 2024Q4

REPORT INFORMATION
  Report Type: Spontaneous
  Country: US (occurrence: None)
  Receive Date: 20241021
  Receipt Date: 20241021
  Transmission Date: 20250115
  Serious: Yes (Other)
  Sender: Public
  Company Number: None

PATIENT
  Age: 62 Year
  Sex: Female
  Weight: 88.65 kg

DRUGS (13)
  1. ACYCLOVIR [Suspect]
     Active Substance: ACYCLOVIR
     Indication: Acrochordon
     Dosage: FREQUENCY : TWICE A DAY;?
     Route: 048
     Dates: start: 20240921, end: 20240929
  2. CPAP [Concomitant]
  3. BUPROPION [Concomitant]
  4. SPRAVATO [Concomitant]
  5. ATOMOXETINE [Concomitant]
  6. ANASTROZOLE [Concomitant]
     Active Substance: ANASTROZOLE
  7. CYCLOBENZAPRINE [Concomitant]
  8. MELOXICAM [Concomitant]
  9. CETIRIZINE HYDROCHLORIDE [Concomitant]
  10. LOW DOSE ASPIRIN [Concomitant]
     Active Substance: ASPIRIN
  11. CBD OIL [Concomitant]
  12. Benadryl [Concomitant]
  13. TYLENOL [Concomitant]

REACTIONS (4)
  - Abdominal pain upper [None]
  - Muscular weakness [None]
  - Urine flow decreased [None]
  - Muscle disorder [None]

NARRATIVE: CASE EVENT DATE: 20240926
